FAERS Safety Report 22104219 (Version 1)
Quarter: 2023Q1

REPORT INFORMATION
  Report Type: Spontaneous
  Country: US (occurrence: US)
  Receive Date: 20230316
  Receipt Date: 20230316
  Transmission Date: 20230418
  Serious: No
  Sender: FDA-Public Use
  Company Number: US-SMITH AND NEPHEW, INC-2022SMT00120

PATIENT
  Age: 47 Year
  Sex: Male
  Weight: 84.807 kg

DRUGS (9)
  1. COLLAGENASE SANTYL [Suspect]
     Active Substance: COLLAGENASE CLOSTRIDIUM HISTOLYTICUM
     Indication: Skin ulcer
     Dosage: ENOUGH TO COVER THE WHOLE ULCER, 2X/DAY
     Route: 061
     Dates: start: 20220615, end: 2022
  2. COLLAGENASE SANTYL [Suspect]
     Active Substance: COLLAGENASE CLOSTRIDIUM HISTOLYTICUM
     Dosage: ENOUGH TO COVER THE WHOLE ULCER (USING MORE), 2X/DAY
     Route: 061
     Dates: start: 2022
  3. CREATINE [Concomitant]
     Active Substance: CREATINE
  4. UNSPECIFIED SUPPLEMENT TO WAKE UP [Concomitant]
  5. CAFFEINE [Concomitant]
     Active Substance: CAFFEINE
  6. XARELTO [Concomitant]
     Active Substance: RIVAROXABAN
  7. UNSPECIFIED ANXIETY DRUG [Concomitant]
  8. CANNABIS SATIVA SUBSP. INDICA TOP [Concomitant]
     Active Substance: CANNABIS SATIVA SUBSP. INDICA TOP
     Dosage: ^EDIBLE^
     Route: 048
  9. UNSPECIFIED OVER THE COUNTER STOMACH PILL [Concomitant]

REACTIONS (3)
  - Wound secretion [Recovering/Resolving]
  - Malabsorption from administration site [Recovering/Resolving]
  - Drug ineffective [Recovering/Resolving]

NARRATIVE: CASE EVENT DATE: 20220615
